FAERS Safety Report 9589675 (Version 1)
Quarter: 2013Q4

REPORT INFORMATION
  Report Type: Spontaneous
  Country: US (occurrence: US)
  Receive Date: 20131003
  Receipt Date: 20131003
  Transmission Date: 20140711
  Serious: No
  Sender: FDA-Public Use
  Company Number: US-AMGEN-USASP2012071143

PATIENT
  Sex: Male

DRUGS (5)
  1. ENBREL [Suspect]
     Indication: PRODUCT USED FOR UNKNOWN INDICATION
     Dosage: 50 MG, QWK
     Route: 058
  2. MELATONIN [Concomitant]
     Dosage: 1 MG, UNK
  3. FOLIC ACID [Concomitant]
  4. MELOXICAM [Concomitant]
     Dosage: 15 MG, UNK
  5. HYDROCODONE/APAP [Concomitant]
     Dosage: 5-500 MG

REACTIONS (1)
  - Drug ineffective [Unknown]
